FAERS Safety Report 12248064 (Version 1)
Quarter: 2016Q2

REPORT INFORMATION
  Report Type: Other
  Country: FI (occurrence: FI)
  Receive Date: 20160408
  Receipt Date: 20160408
  Transmission Date: 20160815
  Serious: Yes (Death)
  Sender: FDA-Public Use
  Company Number: FI-JUBILANT GENERICS LIMITED-1050358

PATIENT
  Age: 71 Year
  Sex: Male

DRUGS (8)
  1. METFORMIN UNKNOWN UNKNOWN [Suspect]
     Active Substance: METFORMIN HYDROCHLORIDE
  2. QUETIAPINE UNKNOWN UNKNOWN [Suspect]
     Active Substance: QUETIAPINE
  3. OXAZEPAM UNKNOWN [Suspect]
     Active Substance: OXAZEPAM
  4. TEMAZEPAM UNKNOWN [Suspect]
     Active Substance: TEMAZEPAM
  5. ETHANOL [Suspect]
     Active Substance: ALCOHOL
  6. CITALOPRAM [Suspect]
     Active Substance: CITALOPRAM HYDROBROMIDE
  7. VALSARTAN. [Suspect]
     Active Substance: VALSARTAN
  8. DONEPEZIL UNKNOWN [Suspect]
     Active Substance: DONEPEZIL

REACTIONS (3)
  - Death [Fatal]
  - Overdose [None]
  - Poisoning [Fatal]

NARRATIVE: CASE EVENT DATE: 20160329
